FAERS Safety Report 15336631 (Version 3)
Quarter: 2018Q4

REPORT INFORMATION
  Report Type: Report from Study
  Country: US (occurrence: US)
  Receive Date: 20180830
  Receipt Date: 20181126
  Transmission Date: 20190204
  Serious: No
  Sender: FDA-Public Use
  Company Number: PHEH2018US036232

PATIENT
  Age: 47 Year
  Sex: Female

DRUGS (1)
  1. GILENYA [Suspect]
     Active Substance: FINGOLIMOD HYDROCHLORIDE
     Indication: MULTIPLE SCLEROSIS
     Dosage: 0.5 MG, QD
     Route: 048
     Dates: start: 20180801

REACTIONS (24)
  - Hypertonic bladder [Unknown]
  - Insomnia [Unknown]
  - Fatigue [Unknown]
  - Depression [Unknown]
  - Amnesia [Unknown]
  - Weight increased [Unknown]
  - Pain [Unknown]
  - Myalgia [Unknown]
  - Memory impairment [Unknown]
  - Dry mouth [Unknown]
  - Dysphagia [Unknown]
  - Malaise [Unknown]
  - Decreased interest [Unknown]
  - Back pain [Unknown]
  - Asthenia [Unknown]
  - Abdominal discomfort [Unknown]
  - Anxiety [Unknown]
  - Tongue discomfort [Unknown]
  - Headache [Unknown]
  - Dizziness [Unknown]
  - Dry throat [Unknown]
  - Nausea [Unknown]
  - Mood swings [Unknown]
  - Peripheral swelling [Unknown]

NARRATIVE: CASE EVENT DATE: 20180801
